FAERS Safety Report 4882289-8 (Version None)
Quarter: 2006Q1

REPORT INFORMATION
  Report Type: 
  Country: None (occurrence: None)
  Receive Date: 20060112
  Receipt Date: 20051215
  Transmission Date: 20060701
  Serious: Yes (Hospitalization)
  Sender: FDA-Public Use
  Company Number: 2005169482

PATIENT
  Age: 78 Year
  Sex: Male
  Weight: 49 kg

DRUGS (6)
  1. ALDACTONE [Suspect]
     Indication: CARDIAC FAILURE
     Dosage: 25 MG (1 IN 24 HR), ORAL
     Route: 048
  2. COVERSYL (PERINDOPRIL) [Suspect]
     Indication: CARDIAC FAILURE
     Dosage: 2 MG (2 MG, 1 IN 24 HR), ORAL
     Route: 048
  3. FUROSEMIDE [Suspect]
     Indication: ILL-DEFINED DISORDER
     Dosage: 500 MG (500 MG, 1 IN 24 HR), ORAL
     Route: 048
     Dates: end: 20040527
  4. POTASSIUM CHLORIDE [Concomitant]
  5. NITRIDERM TTS (GLYCERYL TRINITRATE) [Concomitant]
  6. DIGOXIN [Concomitant]

REACTIONS (4)
  - DEHYDRATION [None]
  - GASTROENTERITIS [None]
  - RENAL FAILURE ACUTE [None]
  - VOMITING [None]
